FAERS Safety Report 5305244-2 (Version None)
Quarter: 2007Q2

REPORT INFORMATION
  Report Type: 
  Country: None (occurrence: None)
  Receive Date: 20070424
  Receipt Date: 20070412
  Transmission Date: 20071010
  Serious: Yes (Other)
  Sender: FDA-Public Use
  Company Number: JP-JNJFOC-20070403259

PATIENT
  Sex: Female
  Weight: 56 kg

DRUGS (7)
  1. REMICADE [Suspect]
     Route: 042
  2. REMICADE [Suspect]
     Route: 042
  3. REMICADE [Suspect]
     Route: 042
  4. REMICADE [Suspect]
     Route: 042
  5. REMICADE [Suspect]
     Indication: CROHN'S DISEASE
     Route: 042
  6. PENTASA [Concomitant]
     Route: 048
  7. LAC-B [Concomitant]
     Route: 048

REACTIONS (5)
  - ANGIOEDEMA [None]
  - BLOOD PRESSURE DECREASED [None]
  - HOT FLUSH [None]
  - INFUSION RELATED REACTION [None]
  - PALPITATIONS [None]
